FAERS Safety Report 8789562 (Version 1)
Quarter: 2012Q4

REPORT INFORMATION
  Report Type: Spontaneous
  Country: US (occurrence: None)
  Receive Date: 20120905
  Receipt Date: 20120905
  Transmission Date: 20130627
  Serious: Yes (Life-Threatening)
  Sender: FDA-Public Use
  Company Number: FK201202545

PATIENT
  Age: 77 Year
  Sex: Female
  Weight: 56 kg

DRUGS (3)
  1. CARBOPLATIN [Suspect]
     Indication: OVARIAN CANCER
     Dosage: 1 IN 3 WK
  2. MORAB-003 [Suspect]
     Dosage: (not otherwise specified)
     Route: 042
  3. :PACLITAXEL (PACLITAXEL) [Concomitant]

REACTIONS (1)
  - Anaphylactic shock [None]
